FAERS Safety Report 19014323 (Version 1)
Quarter: 2021Q1

REPORT INFORMATION
  Report Type: Spontaneous
  Country: DE (occurrence: DE)
  Receive Date: 20210316
  Receipt Date: 20210316
  Transmission Date: 20210420
  Serious: Yes (Hospitalization)
  Sender: FDA-Public Use
  Company Number: DE-TEVA-2021-DE-1890185

PATIENT
  Age: 70 Year
  Sex: Male

DRUGS (12)
  1. FOSTER 100/6MIKROGRAMM [Concomitant]
     Dosage: 100 | 6 UG, IF NECESSARY,
     Route: 048
  2. DEXAMETHASON [Suspect]
     Active Substance: DEXAMETHASONE
     Route: 065
  3. DARATUMUMAB [Suspect]
     Active Substance: DARATUMUMAB
     Route: 065
  4. LANTUS 100EINHEITEN/ML INJEKTIONSLOSUNG IN PATRONE 3ML [Concomitant]
     Dosage: BY VALUE, AMPOULES
     Route: 058
  5. CARMEN 10MG [Concomitant]
     Dosage: 10 MILLIGRAM DAILY; 0.5?0?0.5?0,
     Route: 048
  6. CARVEDIGAMMA 6,25MG [Concomitant]
     Dosage: 1 DOSAGE FORMS DAILY; UNIT DOSE: 6.25 MG, 0.5?0?0.5?0
     Route: 048
  7. COTRIM?CT 800MG/160MG [Concomitant]
     Active Substance: SULFAMETHOXAZOLE\TRIMETHOPRIM
     Dosage: UNIT DOSE: 800 | 160 MG / MON, WED, FRI, 1?0?0?0
     Route: 048
  8. ANTRA MUPS 20MG [Concomitant]
     Dosage: 20 MILLIGRAM DAILY; 1?0?0?0,
     Route: 048
  9. HUMALOG 100EINHEITEN/ML INJ.LSG.IN PATRONE 3ML [Concomitant]
     Dosage: BY VALUE, AMPOULES
     Route: 058
  10. DELIX 5MG [Concomitant]
     Dosage: 5 MILLIGRAM DAILY; 0.5?0?0.5?0,
     Route: 048
  11. REVLIMID [Suspect]
     Active Substance: LENALIDOMIDE
     Dosage: 10 MILLIGRAM DAILY; 1?0?0?0,
     Route: 048
  12. ACICLO BASICS 400MG [Concomitant]
     Dosage: 1200 MILLIGRAM DAILY; 1?1?1?0
     Route: 048

REACTIONS (6)
  - Abdominal pain [Unknown]
  - Diarrhoea [Unknown]
  - Localised infection [Unknown]
  - General physical health deterioration [Unknown]
  - Fatigue [Unknown]
  - Pyrexia [Unknown]
